FAERS Safety Report 10568186 (Version 4)
Quarter: 2014Q4

REPORT INFORMATION
  Report Type: Spontaneous
  Country: JP (occurrence: JP)
  Receive Date: 20141106
  Receipt Date: 20141212
  Transmission Date: 20150529
  Serious: Yes (Death)
  Sender: FDA-Public Use
  Company Number: JP-009507513-1411JPN000230

PATIENT
  Age: 82 Year
  Sex: Male
  Weight: 45 kg

DRUGS (22)
  1. PLAVIX [Concomitant]
     Active Substance: CLOPIDOGREL BISULFATE
     Dosage: 75 MG, QD (AFTER THE BREAKFAST)
     Route: 048
  2. ASCORBIC ACID. [Concomitant]
     Active Substance: ASCORBIC ACID
     Dosage: 500 MG, QD (DIVIDED DOSE FREQUENCY UNKNOWN, VIA PERIPHERAL LINE)
     Route: 041
     Dates: start: 20141023, end: 20141026
  3. FAMOTIDINE. [Concomitant]
     Active Substance: FAMOTIDINE
     Dosage: 20 MG, QD (DIVIDED DOSE FREQUENCY UNKNOWN, VIA PERIPHERAL LINE)
     Route: 041
     Dates: start: 20141024, end: 20141026
  4. SODIUM CHLORIDE. [Concomitant]
     Active Substance: SODIUM CHLORIDE
     Dosage: 50 ML, QD (VIA SECONDARY LINE)
     Route: 041
     Dates: start: 20141024, end: 20141026
  5. FLUMARIN [Concomitant]
     Active Substance: FLOMOXEF SODIUM
     Dosage: 1 G, BID, IN THE MORNING AND EVENING VIA SECONDARY LINE (1 HOUR)
     Route: 041
     Dates: start: 20141024, end: 20141026
  6. ANTEBATE [Concomitant]
     Active Substance: BETAMETHASONE DIPROPIONATE
     Dosage: 50 G, BID (APPLIED)
     Route: 061
     Dates: start: 20141024, end: 20141024
  7. SOLYUGEN F [Concomitant]
     Dosage: 500 ML, QD (DIVIDED DOSE FREQUENCY UNKNOWN, VIA PERIPHERAL LINE)
     Route: 041
     Dates: start: 20141023, end: 20141026
  8. HISINALC [Concomitant]
     Dosage: 1000 ML, QD (DIVIDED DOSE FREQUENCY UNKNOWN, VIA PERIPHERAL LINE)
     Route: 041
     Dates: start: 20141024, end: 20141026
  9. PREDONINE [Concomitant]
     Active Substance: PREDNISOLONE\PREDNISOLONE ACETATE\PREDNISOLONE SODIUM SUCCINATE
     Indication: PEMPHIGOID
     Dosage: 5 MG, QD (VIA SECONDARY LINE)
     Route: 041
     Dates: start: 20141024, end: 20141026
  10. STROMECTOL [Suspect]
     Active Substance: IVERMECTIN
     Indication: ACARODERMATITIS
     Dosage: 9 MG, QD
     Route: 048
     Dates: start: 20141024, end: 20141024
  11. FLUMARIN [Concomitant]
     Active Substance: FLOMOXEF SODIUM
     Indication: PNEUMONIA
     Dosage: 1 G, QD (IN THE MORNING, VIA SECONDARY LINE, 1 HOUR)
     Route: 041
     Dates: start: 20141023, end: 20141023
  12. MEMARY [Concomitant]
     Active Substance: MEMANTINE HYDROCHLORIDE
     Dosage: 10 MG, QD (AFTER THE SUPPER)
     Route: 048
  13. PREDNISOLONE. [Concomitant]
     Active Substance: PREDNISOLONE
     Indication: PEMPHIGOID
     Dosage: 5 MG, QD (AFTER THE BREAKFAST)
     Route: 048
  14. TAKEPRON [Concomitant]
     Active Substance: LANSOPRAZOLE
     Dosage: 15 MG, QD (AFTER THE BREAKFAST)
     Route: 048
  15. RINDERON VG [Concomitant]
     Active Substance: BETAMETHASONE VALERATE\GENTAMICIN SULFATE
     Dosage: 5 G, QD (APPLIED)
     Route: 061
     Dates: start: 20141020, end: 20141020
  16. VITAMEDIN INTRAVENOUS [Concomitant]
     Active Substance: CYANOCOBALAMIN\PYRIDOXINE HYDROCHLORIDE\THIAMINE
     Dosage: 1 DF, QD (DIVIDED DOSE FREQUENCY UNKNOWN, VIA PERIPHERAL LINE)
     Route: 041
     Dates: start: 20141023, end: 20141026
  17. DERIBADEX [Concomitant]
     Dosage: 10 ML, QD (DIVIDED DOSE FREQUENCY UNKNOWN, VIA SECONDARY LINE)
     Route: 042
     Dates: start: 20141025, end: 20141025
  18. EURAX [Concomitant]
     Active Substance: CROTAMITON
     Indication: ACARODERMATITIS
     Dosage: 30 G, BID
     Route: 061
     Dates: start: 20141024, end: 20141026
  19. SYMMETREL [Concomitant]
     Active Substance: AMANTADINE HYDROCHLORIDE
     Dosage: 100 MG, BID (AFTER THE BREAKFAST AND SUPPER)
     Route: 048
  20. RINDERON VG [Concomitant]
     Active Substance: BETAMETHASONE VALERATE\GENTAMICIN SULFATE
     Dosage: 30 ML, BID (APPLIED)
     Route: 061
     Dates: start: 20141020, end: 20141020
  21. ALLELOCK [Concomitant]
     Active Substance: OLOPATADINE HYDROCHLORIDE
     Dosage: 10 MG, BID (AFTER THE BREAKFAST AND SUPPER)
     Route: 048
     Dates: start: 20141020
  22. HISINALC [Concomitant]
     Dosage: 500 ML, QD (DIVIDED DOSE FREQUENCY UNKNOWN, VIA PERIPHERAL LINE)
     Route: 041
     Dates: start: 20141023, end: 20141023

REACTIONS (3)
  - Hepatocellular injury [Unknown]
  - Skin discolouration [Unknown]
  - Acute respiratory failure [Fatal]

NARRATIVE: CASE EVENT DATE: 20141025
